FAERS Safety Report 16035622 (Version 6)
Quarter: 2020Q1

REPORT INFORMATION
  Report Type: Spontaneous
  Country: US (occurrence: US)
  Receive Date: 20190305
  Receipt Date: 20200109
  Transmission Date: 20200409
  Serious: Yes (Other)
  Sender: FDA-Public Use
  Company Number: US-PFIZER INC-2019096292

PATIENT
  Age: 71 Year
  Sex: Female
  Weight: 65.77 kg

DRUGS (2)
  1. CELEBREX [Suspect]
     Active Substance: CELECOXIB
     Indication: ARTHRITIS
     Dosage: 200 MG, UNK
  2. CELEBREX [Suspect]
     Active Substance: CELECOXIB
     Dosage: 100 MG, UNK [ALMOST EVERY DAY]

REACTIONS (2)
  - Haemorrhage [Recovered/Resolved]
  - Limb injury [Not Recovered/Not Resolved]
